FAERS Safety Report 9494246 (Version 1)
Quarter: 2013Q3

REPORT INFORMATION
  Report Type: Report from Study
  Country: US (occurrence: US)
  Receive Date: 20130903
  Receipt Date: 20130903
  Transmission Date: 20140515
  Serious: Yes (Death)
  Sender: FDA-Public Use
  Company Number: US-ROCHE-1269086

PATIENT
  Sex: 0

DRUGS (2)
  1. RANIBIZUMAB [Suspect]
     Indication: VITREOUS HAEMORRHAGE
     Route: 065
  2. RANIBIZUMAB [Suspect]
     Indication: DIABETIC RETINOPATHY

REACTIONS (1)
  - Death [Fatal]
